FAERS Safety Report 24279726 (Version 2)
Quarter: 2025Q1

REPORT INFORMATION
  Report Type: Spontaneous
  Country: CN (occurrence: CN)
  Receive Date: 20240904
  Receipt Date: 20250227
  Transmission Date: 20250408
  Serious: Yes (Hospitalization, Other)
  Sender: NOVO NORDISK
  Company Number: CN-NOVOPROD-1274964

PATIENT
  Age: 49 Year
  Sex: Female
  Weight: 43 kg

DRUGS (4)
  1. NOVORAPID [Suspect]
     Active Substance: INSULIN ASPART
     Indication: Type 1 diabetes mellitus
     Route: 058
  2. NOVORAPID [Suspect]
     Active Substance: INSULIN ASPART
     Route: 058
     Dates: start: 20240825
  3. NOVORAPID [Suspect]
     Active Substance: INSULIN ASPART
     Route: 058
     Dates: start: 20240824
  4. INSULIN GLARGINE [Concomitant]
     Active Substance: INSULIN GLARGINE
     Indication: Product used for unknown indication

REACTIONS (5)
  - Pancreas transplant [Unknown]
  - Dialysis [Recovered/Resolved]
  - Renal transplant [Unknown]
  - Blood glucose increased [Not Recovered/Not Resolved]
  - Hypoglycaemia [Not Recovered/Not Resolved]

NARRATIVE: CASE EVENT DATE: 20230101
